FAERS Safety Report 7782748-4 (Version None)
Quarter: 2011Q3

REPORT INFORMATION
  Report Type: 
  Country: None (occurrence: None)
  Receive Date: 20110926
  Receipt Date: 20110912
  Transmission Date: 20111222
  Serious: Yes (Other)
  Sender: FDA-Public Use
  Company Number: TPA2011A05710

PATIENT
  Sex: Male

DRUGS (1)
  1. ACTOS [Suspect]
     Indication: BLOOD GLUCOSE FLUCTUATION

REACTIONS (1)
  - BLADDER CANCER [None]
